FAERS Safety Report 20763857 (Version 1)
Quarter: 2022Q2

REPORT INFORMATION
  Report Type: Spontaneous
  Country: US (occurrence: None)
  Receive Date: 20220428
  Receipt Date: 20220428
  Transmission Date: 20220721
  Serious: Yes (Other)
  Sender: FDA-Public Use
  Company Number: None

PATIENT
  Age: 16 Year
  Sex: Female
  Weight: 112.5 kg

DRUGS (2)
  1. ESTROGENS [Suspect]
     Active Substance: ESTROGENS
     Indication: Acne
  2. ESTROGENS [Suspect]
     Active Substance: ESTROGENS
     Indication: Muscle spasms

REACTIONS (6)
  - Surgery [None]
  - Hormone level abnormal [None]
  - Therapy interrupted [None]
  - Pregnancy [None]
  - Abortion spontaneous [None]
  - Educational problem [None]

NARRATIVE: CASE EVENT DATE: 19770101
